FAERS Safety Report 5584634-7 (Version None)
Quarter: 2008Q1

REPORT INFORMATION
  Report Type: 
  Country: None (occurrence: None)
  Receive Date: 20080103
  Receipt Date: 20071221
  Transmission Date: 20080703
  Serious: Yes (Other)
  Sender: FDA-Public Use
  Company Number: T07-ARG-05660-01

PATIENT
  Age: 75 Year
  Sex: Female
  Weight: 57.5 kg

DRUGS (9)
  1. MEMANTINE HCL [Suspect]
     Indication: DEMENTIA ALZHEIMER'S TYPE
     Dosage: 21 MG QD PO
     Route: 048
     Dates: start: 20070410, end: 20071012
  2. SIMVASTATIN [Concomitant]
  3. ENALAPRIL MALEATE [Concomitant]
  4. HYDROCHLOROTHIAZIDE [Concomitant]
  5. TRAZODONE HCL [Concomitant]
  6. QUETIAPINE [Concomitant]
  7. DONEPEZIL HCL [Concomitant]
  8. ATENOLOL [Concomitant]
  9. ASPIRIN [Concomitant]

REACTIONS (8)
  - DRUG WITHDRAWAL CONVULSIONS [None]
  - DYSKINESIA [None]
  - FALL [None]
  - GRAND MAL CONVULSION [None]
  - INCORRECT DOSE ADMINISTERED [None]
  - IRRITABILITY [None]
  - TREMOR [None]
  - URINARY INCONTINENCE [None]
